FAERS Safety Report 14984718 (Version 1)
Quarter: 2018Q2

REPORT INFORMATION
  Report Type: Spontaneous
  Country: US (occurrence: US)
  Receive Date: 20180518
  Receipt Date: 20180518
  Transmission Date: 20180711
  Serious: Yes (Disabling, Other)
  Sender: FDA-Public Use
  Company Number: None

PATIENT
  Age: 42 Year
  Sex: Female
  Weight: 66.15 kg

DRUGS (8)
  1. TRIPLE MAGNESIUM COMPLEX [Concomitant]
  2. LOW DOSE ASPIRIN 81MG [Concomitant]
  3. LUPRON DEPOT W/NORETHINDRONE ACETATE [Concomitant]
  4. LUPRON DEPOT [Suspect]
     Active Substance: LEUPROLIDE ACETATE
     Indication: UTERINE LEIOMYOMA
     Dosage: ?          OTHER FREQUENCY:1 SHOT EVERY 3 MO;?
     Route: 030
     Dates: end: 20180308
  5. VITAMIN D [Concomitant]
     Active Substance: CHOLECALCIFEROL
  6. ERGOCALCIFEROL (VITAMIN D2) [Concomitant]
  7. HYDROXYZINE HCL [Concomitant]
     Active Substance: HYDROXYZINE HYDROCHLORIDE
  8. DANDELION TEA [Concomitant]

REACTIONS (5)
  - Pain in extremity [None]
  - Headache [None]
  - Neck pain [None]
  - Horner^s syndrome [None]
  - Blindness unilateral [None]

NARRATIVE: CASE EVENT DATE: 20180208
